FAERS Safety Report 23152548 (Version 3)
Quarter: 2024Q1

REPORT INFORMATION
  Report Type: Report from Study
  Country: US (occurrence: US)
  Receive Date: 20231107
  Receipt Date: 20240131
  Transmission Date: 20240410
  Serious: No
  Sender: FDA-Public Use
  Company Number: US-GLAXOSMITHKLINE-US2023AMR153243

PATIENT
  Sex: Female

DRUGS (7)
  1. NIRAPARIB [Suspect]
     Active Substance: NIRAPARIB
     Indication: Ovarian cancer
     Dosage: 100 MG, QD
     Dates: start: 20231228
  2. NIRAPARIB [Suspect]
     Active Substance: NIRAPARIB
     Indication: Ovarian cancer
     Dosage: 100 MG, QD
     Route: 048
  3. TYLENOL [Concomitant]
     Active Substance: ACETAMINOPHEN
     Indication: Product used for unknown indication
     Dosage: UNK
  4. ELIQUIS [Concomitant]
     Active Substance: APIXABAN
     Indication: Product used for unknown indication
     Dosage: UNK
  5. DIGOXIN [Concomitant]
     Active Substance: DIGOXIN
     Indication: Product used for unknown indication
     Dosage: UNK
  6. ATENOLOL [Concomitant]
     Active Substance: ATENOLOL
     Indication: Product used for unknown indication
     Dosage: UNK
  7. VITAMIN D3 [Concomitant]
     Active Substance: CHOLECALCIFEROL
     Indication: Product used for unknown indication
     Dosage: UNK

REACTIONS (11)
  - Diarrhoea [Not Recovered/Not Resolved]
  - Dizziness [Recovering/Resolving]
  - Memory impairment [Unknown]
  - Fatigue [Not Recovered/Not Resolved]
  - Gait disturbance [Unknown]
  - Dyspnoea [Not Recovered/Not Resolved]
  - Back pain [Recovered/Resolved]
  - Constipation [Not Recovered/Not Resolved]
  - Insomnia [Not Recovered/Not Resolved]
  - Product dose omission issue [Unknown]
  - Off label use [Unknown]
